FAERS Safety Report 6296608-1 (Version None)
Quarter: 2009Q3

REPORT INFORMATION
  Report Type: 
  Country: None (occurrence: None)
  Receive Date: 20090804
  Receipt Date: 20090724
  Transmission Date: 20100115
  Serious: Yes (Death, Life-Threatening)
  Sender: FDA-Public Use
  Company Number: JP-ABBOTT-09P-087-0580957-00

PATIENT
  Age: 84 Year
  Sex: Male

DRUGS (5)
  1. LEUPLIN FOR INJECTION 3.75 MG [Suspect]
     Indication: PROSTATE CANCER STAGE IV
     Route: 058
     Dates: start: 20060614, end: 20060811
  2. LEUPLIN SR FOR INJECTION 11.25 MG [Suspect]
     Indication: PROSTATE CANCER STAGE IV
     Route: 058
     Dates: start: 20060908, end: 20080118
  3. LEUPLIN SR FOR INJECTION 11.25 MG [Suspect]
     Route: 058
  4. CASODEX [Concomitant]
     Indication: PROSTATE CANCER STAGE IV
     Route: 048
     Dates: end: 20071214
  5. ZOMETA [Concomitant]
     Indication: PROSTATE CANCER STAGE IV
     Route: 042
     Dates: start: 20080208, end: 20080208

REACTIONS (3)
  - INJECTION SITE INDURATION [None]
  - PNEUMONIA [None]
  - PROSTATE CANCER [None]
